FAERS Safety Report 7595468-6 (Version None)
Quarter: 2011Q3

REPORT INFORMATION
  Report Type: 
  Country: None (occurrence: None)
  Receive Date: 20110707
  Receipt Date: 20110628
  Transmission Date: 20111222
  Serious: Yes (Death, Hospitalization, Other)
  Sender: FDA-Public Use
  Company Number: US-BAXTER-2011BH018517

PATIENT
  Age: 74 Year
  Sex: Female

DRUGS (2)
  1. DIANEAL [Suspect]
     Indication: PERITONEAL DIALYSIS
     Route: 033
  2. DIANEAL [Suspect]
     Indication: PERITONEAL DIALYSIS
     Route: 033

REACTIONS (6)
  - MYOCARDIAL INFARCTION [None]
  - ANGINA PECTORIS [None]
  - CORONARY ARTERY OCCLUSION [None]
  - CARDIAC DISORDER [None]
  - HYPOGLYCAEMIA [None]
  - CARDIAC FAILURE CONGESTIVE [None]
